FAERS Safety Report 23050186 (Version 2)
Quarter: 2023Q4

REPORT INFORMATION
  Report Type: Report from Study
  Country: CA (occurrence: CA)
  Receive Date: 20231010
  Receipt Date: 20231016
  Transmission Date: 20240109
  Serious: Yes (Other)
  Sender: FDA-Public Use
  Company Number: CA-HLS-202301718

PATIENT
  Age: 57 Year
  Sex: Male

DRUGS (11)
  1. CLOZARIL [Suspect]
     Active Substance: CLOZAPINE
     Indication: Aggression
     Dosage: 125MG
     Route: 048
     Dates: start: 20230714
  2. CLOZARIL [Suspect]
     Active Substance: CLOZAPINE
     Indication: Aggression
     Dosage: 25 MG
     Route: 048
  3. CLOZARIL [Suspect]
     Active Substance: CLOZAPINE
     Indication: Aggression
     Dosage: 75 MG BID / 07-07-2023
     Route: 048
     Dates: start: 20230707
  4. CLOZARIL [Suspect]
     Active Substance: CLOZAPINE
     Indication: Aggression
     Dosage: DOSAGE WAS DECREASED FROM 75MG TWICE PER DAY TO 50MG TWICE PER DAY.
     Route: 048
  5. LORAZEPAM [Concomitant]
     Active Substance: LORAZEPAM
     Indication: Product used for unknown indication
     Route: 065
     Dates: start: 20230804
  6. TRAZODONE [Concomitant]
     Active Substance: TRAZODONE HYDROCHLORIDE
     Indication: Product used for unknown indication
     Route: 065
  7. PANTOPRAZOLE [Concomitant]
     Active Substance: PANTOPRAZOLE
     Indication: Product used for unknown indication
     Route: 065
  8. VITAMINS [Concomitant]
     Active Substance: VITAMINS
     Indication: Product used for unknown indication
     Route: 065
  9. DOCUSATE SODIUM [Concomitant]
     Active Substance: DOCUSATE SODIUM
     Indication: Product used for unknown indication
     Route: 065
  10. DIVALPROEX SODIUM [Concomitant]
     Active Substance: DIVALPROEX SODIUM
     Indication: Product used for unknown indication
     Route: 065
  11. BUSPIRONE [Concomitant]
     Active Substance: BUSPIRONE HYDROCHLORIDE
     Indication: Product used for unknown indication
     Route: 065

REACTIONS (7)
  - Aggression [Unknown]
  - Mobility decreased [Unknown]
  - Decreased appetite [Unknown]
  - Off label use [Unknown]
  - Sedation [Recovered/Resolved]
  - Gait inability [Recovered/Resolved]
  - Lethargy [Recovering/Resolving]

NARRATIVE: CASE EVENT DATE: 20230715
